FAERS Safety Report 5157946-9 (Version None)
Quarter: 2006Q4

REPORT INFORMATION
  Report Type: 
  Country: None (occurrence: None)
  Receive Date: 20061115
  Receipt Date: 20061031
  Transmission Date: 20070319
  Serious: Yes (Hospitalization)
  Sender: FDA-Public Use
  Company Number: 280001M06JPN

PATIENT
  Age: 34 Year
  Sex: Female
  Weight: 48 kg

DRUGS (12)
  1. FERTINORM P           (MENOTROPHIN) [Suspect]
     Indication: INFERTILITY
     Dosage: 75 IU, 1 IN 1 DAYS,
     Dates: start: 20060518, end: 20060521
  2. PERGOGREEN                (MENOTROPHIN) [Suspect]
     Indication: INFERTILITY
     Dosage: 75 IU, 1 IN 1 DAYS
     Dates: start: 20060522, end: 20060524
  3. BUSERELIN [Concomitant]
  4. MEDROXYPROGESTERONE ACETATE [Concomitant]
  5. EUGYNON [Concomitant]
  6. ACETAMINOPHEN [Concomitant]
  7. MUCOSTA (REBAMIPIDE) [Concomitant]
  8. CEFDINIR [Concomitant]
  9. TRANSAMIN (TRANEXAMIC ACID) [Concomitant]
  10. IBUPROFEN [Concomitant]
  11. DICLOFENAC SODIUM [Concomitant]
  12. RILMAZAFONE [Concomitant]

REACTIONS (11)
  - ALANINE AMINOTRANSFERASE INCREASED [None]
  - ANTIBODY TEST POSITIVE [None]
  - ANTINUCLEAR ANTIBODY INCREASED [None]
  - ASPARTATE AMINOTRANSFERASE INCREASED [None]
  - CYTOMEGALOVIRUS ANTIBODY POSITIVE [None]
  - EPSTEIN-BARR VIRUS ANTIBODY POSITIVE [None]
  - LIVER DISORDER [None]
  - LYMPHOCYTE MORPHOLOGY ABNORMAL [None]
  - MALAISE [None]
  - UNEVALUABLE EVENT [None]
  - UPPER RESPIRATORY TRACT INFLAMMATION [None]
